FAERS Safety Report 12561035 (Version 4)
Quarter: 2017Q2

REPORT INFORMATION
  Report Type: Report from Study
  Country: US (occurrence: US)
  Receive Date: 20160715
  Receipt Date: 20170412
  Transmission Date: 20170830
  Serious: Yes (Death, Hospitalization, Other)
  Sender: FDA-Public Use
  Company Number: US-OTSUKA-2016_017359

PATIENT
  Age: 72 Year
  Sex: Male
  Weight: 104 kg

DRUGS (4)
  1. BORTEZOMIB [Suspect]
     Active Substance: BORTEZOMIB
     Indication: ACUTE MYELOID LEUKAEMIA
     Dosage: 1.3 MG/M2, IN 1 CYCLICAL
     Route: 058
     Dates: start: 20130219
  2. DECITABINE. [Suspect]
     Active Substance: DECITABINE
     Dosage: 20 MG/M2, IN 1 CYCLICAL
     Route: 042
     Dates: start: 201302
  3. BORTEZOMIB [Suspect]
     Active Substance: BORTEZOMIB
     Dosage: 1.3 MG/M2, IN 1 CYCLICAL
     Route: 058
     Dates: start: 20130225
  4. DECITABINE. [Suspect]
     Active Substance: DECITABINE
     Indication: ACUTE MYELOID LEUKAEMIA
     Dosage: 20 MG/M2, IN 1 CYCLICAL REMISSION INDUCTION,OVER 60 MIN ON DAYS 2-11 MAINTENANCE 60 MINS ON DAYS 1-5
     Route: 042
     Dates: start: 20130220, end: 20130225

REACTIONS (4)
  - Neutrophil count decreased [Unknown]
  - Rash pustular [Unknown]
  - Sepsis [Fatal]
  - Respiratory failure [Fatal]

NARRATIVE: CASE EVENT DATE: 20130225
